FAERS Safety Report 4840413-7 (Version None)
Quarter: 2005Q4

REPORT INFORMATION
  Report Type: 
  Country: None (occurrence: None)
  Receive Date: 20051024
  Receipt Date: 20050831
  Transmission Date: 20060501
  Serious: No
  Sender: FDA-Public Use
  Company Number: 217375

PATIENT
  Age: 12 Year
  Sex: Female
  Weight: 66 kg

DRUGS (4)
  1. XOLAIR [Suspect]
     Indication: ASTHMA
     Dosage: 150 MG, Q4W,SUBCUTANEOUS
     Route: 058
  2. ADVAIR DISKUS 100/50 [Concomitant]
  3. NASACORT AQ (TRIAMCINOLONE ACETONIDE) [Concomitant]
  4. NEXIUM [Concomitant]

REACTIONS (1)
  - INJECTION SITE SWELLING [None]
